FAERS Safety Report 7179438-8 (Version None)
Quarter: 2010Q4

REPORT INFORMATION
  Report Type: 
  Country: None (occurrence: None)
  Receive Date: 20101209
  Receipt Date: 20101124
  Transmission Date: 20110411
  Serious: Yes (Death, Hospitalization)
  Sender: FDA-Public Use
  Company Number: 2010AP002527

PATIENT
  Age: 83 Year
  Sex: Female

DRUGS (8)
  1. ALENDRONATE SODIUM [Suspect]
     Indication: TEMPORAL ARTERITIS
     Dosage: QW; PO
     Route: 048
     Dates: start: 20100927, end: 20101015
  2. CALCIUM CARBONATE (CALCIUM CARBONATE0 [Concomitant]
  3. COLECALCIFEROL (COLECALCIFEROL) [Concomitant]
  4. ASPIRIN [Concomitant]
  5. BIMATOPROST (BIMATOPROST) [Concomitant]
  6. TIMOLOL MALEATE [Concomitant]
  7. OMEPRAZOLE [Concomitant]
  8. PREDNISOLONE [Concomitant]

REACTIONS (1)
  - TOXIC EPIDERMAL NECROLYSIS [None]
